FAERS Safety Report 16466131 (Version 2)
Quarter: 2020Q4

REPORT INFORMATION
  Report Type: Spontaneous
  Country: US (occurrence: US)
  Receive Date: 20190621
  Receipt Date: 20201221
  Transmission Date: 20210113
  Serious: No
  Sender: FDA-Public Use
  Company Number: US-ACORDA-ACO_159293_2019

PATIENT
  Age: 68 Year
  Sex: Female

DRUGS (1)
  1. INBRIJA [Suspect]
     Active Substance: LEVODOPA
     Indication: PRODUCT USED FOR UNKNOWN INDICATION
     Dosage: UNK
     Dates: start: 201906

REACTIONS (5)
  - Throat irritation [Unknown]
  - Therapeutic product effect variable [Unknown]
  - Dry throat [Unknown]
  - Cough [Unknown]
  - Sinus disorder [Unknown]

NARRATIVE: CASE EVENT DATE: 20190612
